FAERS Safety Report 19091669 (Version 1)
Quarter: 2021Q2

REPORT INFORMATION
  Report Type: Spontaneous
  Country: US (occurrence: US)
  Receive Date: 20210405
  Receipt Date: 20210405
  Transmission Date: 20210717
  Serious: No
  Sender: FDA-Public Use
  Company Number: US-BAUSCH-BL-2021-007114

PATIENT
  Age: 89 Year
  Sex: Female
  Weight: 59.02 kg

DRUGS (1)
  1. IPRATROPIUM BROMIDE NASAL SOLUTION 0.03% [Suspect]
     Active Substance: IPRATROPIUM BROMIDE
     Indication: UPPER-AIRWAY COUGH SYNDROME
     Dosage: FOR 10 YEARS 2?3 SPRAYS IN EACH NOSTRIL EVERY DAY
     Route: 045

REACTIONS (1)
  - Therapeutic product effect decreased [Unknown]
